FAERS Safety Report 8237928 (Version 2)
Quarter: 2013Q1

REPORT INFORMATION
  Report Type: Spontaneous
  Country: US (occurrence: US)
  Receive Date: 20111109
  Receipt Date: 20130215
  Transmission Date: 20140127
  Serious: Yes (Hospitalization, Other)
  Sender: FDA-Public Use
  Company Number: US-BAYER-2011-105963

PATIENT
  Age: 33 Year
  Sex: Female
  Weight: 97.51 kg

DRUGS (8)
  1. YAZ [Suspect]
     Indication: PREMENSTRUAL DYSPHORIC DISORDER
     Dosage: UNK
     Dates: start: 2006, end: 2008
  2. YAZ [Suspect]
     Indication: PREMENSTRUAL SYNDROME
  3. AXERT [Concomitant]
  4. CITRACAL + D [CALCIUM CITRATE,COLECALCIFEROL] [Concomitant]
  5. MULTIVITAMINS [Concomitant]
  6. IBUPROFEN [Concomitant]
  7. NICODERM [Concomitant]
  8. LUPRON [Concomitant]
     Dosage: UNK
     Dates: start: 20080828

REACTIONS (12)
  - Pulmonary embolism [None]
  - Deep vein thrombosis [Recovered/Resolved]
  - Pain [None]
  - Injury [None]
  - General physical health deterioration [None]
  - Anxiety [None]
  - Emotional distress [None]
  - General physical condition abnormal [None]
  - Gait disturbance [Recovered/Resolved]
  - Bursitis [None]
  - Pain in extremity [Recovered/Resolved]
  - Arthralgia [Recovered/Resolved]
